FAERS Safety Report 7415206-7 (Version None)
Quarter: 2011Q2

REPORT INFORMATION
  Report Type: 
  Country: None (occurrence: None)
  Receive Date: 20110414
  Receipt Date: 20110405
  Transmission Date: 20111010
  Serious: Yes (Other)
  Sender: FDA-Public Use
  Company Number: PHHY2011US27315

PATIENT
  Sex: Male
  Weight: 67 kg

DRUGS (8)
  1. EXJADE [Suspect]
     Indication: MYELODYSPLASTIC SYNDROME
     Dosage: 500 MG, TID
     Route: 048
     Dates: start: 20110301
  2. ACETAMINOPHEN [Concomitant]
  3. HYDROCHLOROTHIAZIDE [Concomitant]
     Dosage: 25 MG, QD
     Route: 048
  4. CEPHALEXIN [Concomitant]
  5. OMEPRAZOLE [Concomitant]
  6. POTASSIUM [Concomitant]
  7. PROCRIT [Concomitant]
     Dosage: 40000 2DAYS/WEEK
     Route: 058
  8. LEUKINE [Concomitant]
     Dosage: 500 MG, DAILY
     Route: 058

REACTIONS (1)
  - SQUAMOUS CELL CARCINOMA [None]
